FAERS Safety Report 15901647 (Version 1)
Quarter: 2019Q1

REPORT INFORMATION
  Report Type: Report from Study
  Country: US (occurrence: US)
  Receive Date: 20190201
  Receipt Date: 20190201
  Transmission Date: 20190417
  Serious: Yes (Hospitalization)
  Sender: FDA-Public Use
  Company Number: US-ACTELION-A-US2019-184703

PATIENT
  Age: 47 Year
  Sex: Male
  Weight: 93.9 kg

DRUGS (5)
  1. UPTRAVI [Suspect]
     Active Substance: SELEXIPAG
     Dosage: 400 MCG, UNK
     Route: 048
  2. ADCIRCA [Concomitant]
     Active Substance: TADALAFIL
  3. NIFEDIPINE. [Concomitant]
     Active Substance: NIFEDIPINE
  4. UPTRAVI [Suspect]
     Active Substance: SELEXIPAG
     Indication: PULMONARY ARTERIAL HYPERTENSION
     Dosage: 600 MCG, BID
     Route: 048
     Dates: start: 20181112
  5. LETAIRIS [Concomitant]
     Active Substance: AMBRISENTAN

REACTIONS (17)
  - Headache [Recovered/Resolved]
  - Right ventricular dysfunction [Unknown]
  - Supraventricular tachycardia [Recovered/Resolved]
  - Tricuspid valve incompetence [Unknown]
  - Cardiac ablation [Recovered/Resolved]
  - Hospitalisation [Unknown]
  - Diarrhoea [Recovered/Resolved]
  - Atrial tachycardia [Recovered/Resolved]
  - Brain natriuretic peptide increased [Unknown]
  - Electrocardiogram abnormal [Unknown]
  - Bundle branch block right [Unknown]
  - Ventricular extrasystoles [Unknown]
  - Vomiting [Recovered/Resolved]
  - Right ventricular dilatation [Unknown]
  - Right atrial dilatation [Unknown]
  - Fluid overload [Unknown]
  - Product dose omission [Recovered/Resolved]

NARRATIVE: CASE EVENT DATE: 20181120
